FAERS Safety Report 6742419-X (Version None)
Quarter: 2010Q2

REPORT INFORMATION
  Report Type: 
  Country: None (occurrence: None)
  Receive Date: 20100524
  Receipt Date: 20100507
  Transmission Date: 20101027
  Serious: Yes (Hospitalization)
  Sender: FDA-Public Use
  Company Number: B0649323A

PATIENT
  Age: 73 Year
  Sex: Female

DRUGS (11)
  1. OMEPRAZOLE [Suspect]
     Indication: BARRETT'S OESOPHAGUS
     Dosage: 40 MG/PER/DAY / ORAL
     Route: 048
     Dates: start: 19990101, end: 20080101
  2. PANTOPRAZOLE [Suspect]
     Indication: BARRETT'S OESOPHAGUS
     Dosage: 40 MG/PER/DAY / ORAL
  3. ESOMEPRAZOLE (FORMULATION UNKNOWN) (GENERIC) (ESOMEPRAZOLE) [Suspect]
     Indication: BARRETT'S OESOPHAGUS
     Dosage: 20 MG/PER/DAY
  4. PANTOPRAZOLE [Suspect]
     Indication: BARRETT'S OESOPHAGUS
     Dosage: 40 MG/PER/DAY
  5. TAGAMET [Suspect]
  6. ZANTAC [Suspect]
  7. STEROID [Concomitant]
  8. ALTACALCIDOL [Concomitant]
  9. CALCICHEW-D3 [Concomitant]
  10. FRUSEMIDE [Concomitant]
  11. BENDROFLUAZIDE [Concomitant]

REACTIONS (19)
  - ABDOMINAL PAIN [None]
  - ARTHRALGIA [None]
  - CHEST PAIN [None]
  - CIRCULATORY COLLAPSE [None]
  - DIARRHOEA [None]
  - FALL [None]
  - FATIGUE [None]
  - GAIT DISTURBANCE [None]
  - GRAND MAL CONVULSION [None]
  - HYPERTENSION [None]
  - HYPOCALCAEMIA [None]
  - HYPOMAGNESAEMIA [None]
  - LARYNGEAL OEDEMA [None]
  - LETHARGY [None]
  - MUSCLE SPASMS [None]
  - PARAESTHESIA [None]
  - PULMONARY OEDEMA [None]
  - RASH PRURITIC [None]
  - TETANY [None]
